FAERS Safety Report 11072487 (Version 1)
Quarter: 2015Q2

REPORT INFORMATION
  Report Type: Spontaneous
  Country: CH (occurrence: None)
  Receive Date: 20150424
  Receipt Date: 20150424
  Transmission Date: 20150821
  Serious: Yes (Other)
  Sender: FDA-Public Use
  Company Number: 20150204

PATIENT
  Sex: Female

DRUGS (1)
  1. FERINJECT [Suspect]
     Active Substance: FERRIC CARBOXYMALTOSE
     Indication: IRON DEFICIENCY
     Dosage: 1000 MG IN 1000 ML NS IN 2 HRS
     Route: 041
     Dates: start: 2012, end: 2012

REACTIONS (4)
  - Arthralgia [None]
  - Wrong technique in drug usage process [None]
  - Pain [None]
  - Rhabdomyolysis [None]

NARRATIVE: CASE EVENT DATE: 2012
